FAERS Safety Report 16490015 (Version 1)
Quarter: 2019Q2

REPORT INFORMATION
  Report Type: Spontaneous
  Country: US (occurrence: US)
  Receive Date: 20190628
  Receipt Date: 20190628
  Transmission Date: 20190711
  Serious: No
  Sender: FDA-Public Use
  Company Number: US-ACCORD-090853

PATIENT
  Age: 40 Year
  Sex: Female
  Weight: 90.72 kg

DRUGS (1)
  1. CLONAZEPAM ACCORD [Suspect]
     Active Substance: CLONAZEPAM
     Indication: PANIC ATTACK

REACTIONS (5)
  - Condition aggravated [Unknown]
  - Product substitution issue [Unknown]
  - Insomnia [Unknown]
  - Product supply issue [Unknown]
  - Drug ineffective [Unknown]
